FAERS Safety Report 12721961 (Version 1)
Quarter: 2016Q3

REPORT INFORMATION
  Report Type: Spontaneous
  Country: DE (occurrence: DE)
  Receive Date: 20160907
  Receipt Date: 20160907
  Transmission Date: 20161109
  Serious: Yes (Death)
  Sender: FDA-Public Use
  Company Number: DE-TEVA-688995GER

PATIENT
  Age: 4 Year
  Sex: Male
  Weight: 19 kg

DRUGS (1)
  1. PROPOFOL. [Suspect]
     Active Substance: PROPOFOL
     Indication: MEDICAL INDUCTION OF COMA
     Route: 042
     Dates: start: 20160727, end: 20160730

REACTIONS (6)
  - Lactic acidosis [Fatal]
  - Propofol infusion syndrome [Fatal]
  - Arrhythmia [Fatal]
  - Rhabdomyolysis [Fatal]
  - Renal failure [Fatal]
  - Blood triglycerides increased [Fatal]

NARRATIVE: CASE EVENT DATE: 20160730
